FAERS Safety Report 7981579-X (Version None)
Quarter: 2011Q4

REPORT INFORMATION
  Report Type: 
  Country: None (occurrence: None)
  Receive Date: 20111215
  Receipt Date: 20111130
  Transmission Date: 20120403
  Serious: Yes (Other)
  Sender: FDA-Public Use
  Company Number: PL-COVIDIEN/TYCO HEALTHCARE/MALLINCKRODT-T201102894

PATIENT

DRUGS (1)
  1. SODIUM IODIDE I 131 /THERAPY/ CAP [Suspect]
     Indication: HYPERTHYROIDISM
     Dosage: 527.7 +/- 168.1
     Route: 065

REACTIONS (1)
  - TREATMENT FAILURE [None]
